FAERS Safety Report 7452319-8 (Version None)
Quarter: 2011Q2

REPORT INFORMATION
  Report Type: 
  Country: None (occurrence: None)
  Receive Date: 20110502
  Receipt Date: 20110407
  Transmission Date: 20111010
  Serious: Yes (Other)
  Sender: FDA-Public Use
  Company Number: US-BAYER-200934817NA

PATIENT
  Age: 52 Year
  Sex: Female
  Weight: 78.458 kg

DRUGS (24)
  1. NORCURON [Concomitant]
     Dosage: UNK
     Route: 042
     Dates: start: 20051117, end: 20051117
  2. LANOXIN [Concomitant]
     Dosage: 0.125 MG, QD
     Route: 048
  3. RENAGEL [Concomitant]
  4. ETOMIDATE [Concomitant]
     Dosage: UNK
     Route: 042
     Dates: start: 20051117, end: 20051117
  5. LIDOCAINE [Concomitant]
     Dosage: 50 G, UNK
     Route: 042
     Dates: start: 20051117, end: 20051117
  6. PROTAMINE SULFATE [Concomitant]
     Dosage: 30 MG, UNK
     Route: 042
     Dates: start: 20051117, end: 20051117
  7. EPOGEN [Concomitant]
     Dosage: 10,000 WITH DIALYSIS
     Route: 042
  8. METOPROLOL SUCCINATE [Concomitant]
     Route: 048
  9. CIPROFLOXACIN [Concomitant]
     Dosage: 40 MG, UNK
     Route: 042
     Dates: start: 20051117, end: 20051117
  10. PAVULON [Concomitant]
     Dosage: UNK
     Dates: start: 20051117, end: 20051117
  11. AMIODARONE [Concomitant]
     Dosage: 300 MG, UNK
     Route: 042
     Dates: start: 20051117, end: 20051117
  12. TRASYLOL [Suspect]
     Indication: AORTIC VALVE REPLACEMENT
     Dosage: 1ML TEST DOSE
     Dates: start: 20051117
  13. FENTANYL [Concomitant]
     Dosage: UNK
     Route: 042
     Dates: start: 20051117, end: 20051117
  14. MIDAZOLAM [Concomitant]
     Dosage: UNK
     Route: 042
     Dates: start: 20051117, end: 20051117
  15. SUCCINYLCHOLINE CHLORIDE [Concomitant]
     Dosage: UNK
     Route: 042
     Dates: start: 20051117, end: 20051117
  16. DOBUTAMINE HYDROCHLORIDE [Concomitant]
     Dosage: UNK
     Route: 042
     Dates: start: 20051117, end: 20051117
  17. VANCOMYCIN [Concomitant]
     Dosage: 1 G, UNK
     Route: 042
     Dates: start: 20051117, end: 20051117
  18. HEPARIN [Concomitant]
     Dosage: 23000 IU
     Route: 042
     Dates: start: 20051117, end: 20051117
  19. PROCARDIA [Concomitant]
     Dosage: 60 MG, QD
     Route: 048
  20. ACCUPRIL [Concomitant]
     Dosage: UNK
     Route: 048
  21. PHENYLEPHRINE HCL [Concomitant]
     Dosage: UNK
     Route: 042
     Dates: start: 20051117, end: 20051117
  22. DOBUTAMINE HYDROCHLORIDE [Concomitant]
     Dosage: 6 MG, UNK
     Route: 042
     Dates: start: 20051117, end: 20051117
  23. INSULIN [INSULIN] [Concomitant]
     Dosage: UNK
     Route: 042
     Dates: start: 20051117, end: 20051117
  24. VASOPRESSIN [VASOPRESSIN] [Concomitant]
     Dosage: 30 MG, UNK
     Route: 042
     Dates: start: 20051117, end: 20051117

REACTIONS (12)
  - EMOTIONAL DISTRESS [None]
  - RENAL INJURY [None]
  - PAIN [None]
  - ANHEDONIA [None]
  - ANXIETY [None]
  - INJURY [None]
  - DEPRESSION [None]
  - NERVOUSNESS [None]
  - RENAL FAILURE [None]
  - FEAR [None]
  - MULTI-ORGAN FAILURE [None]
  - FEAR OF DEATH [None]
